FAERS Safety Report 17796712 (Version 1)
Quarter: 2020Q2

REPORT INFORMATION
  Report Type: Spontaneous
  Country: CN (occurrence: CN)
  Receive Date: 20200518
  Receipt Date: 20200518
  Transmission Date: 20200714
  Serious: Yes (Other)
  Sender: FDA-Public Use
  Company Number: CN-ROCHE-2600911

PATIENT
  Age: 66 Year
  Sex: Male

DRUGS (5)
  1. HERCEPTIN [Suspect]
     Active Substance: TRASTUZUMAB
     Route: 065
     Dates: start: 20191107
  2. TEGAFUR [Concomitant]
     Active Substance: TEGAFUR
     Indication: GASTRIC CANCER
     Route: 065
     Dates: start: 20191013
  3. HERCEPTIN [Suspect]
     Active Substance: TRASTUZUMAB
     Route: 065
     Dates: start: 20191130
  4. PACLITAXEL. [Concomitant]
     Active Substance: PACLITAXEL
     Indication: GASTRIC CANCER
     Route: 065
     Dates: start: 20191013
  5. HERCEPTIN [Suspect]
     Active Substance: TRASTUZUMAB
     Indication: GASTRIC CANCER
     Route: 065
     Dates: start: 20191013

REACTIONS (1)
  - Hypoaesthesia [Unknown]
